FAERS Safety Report 18373077 (Version 2)
Quarter: 2020Q4

REPORT INFORMATION
  Report Type: Report from Study
  Country: None (occurrence: FI)
  Receive Date: 20201012
  Receipt Date: 20201015
  Transmission Date: 20210114
  Serious: Yes (Hospitalization)
  Sender: FDA-Public Use
  Company Number: FI-ABBVIE-20K-055-3597191-00

PATIENT
  Sex: Female

DRUGS (2)
  1. DUODOPA [Suspect]
     Active Substance: CARBIDOPA\LEVODOPA
     Indication: PARKINSON^S DISEASE
     Dosage: 16 H TREATMENT
     Route: 050
     Dates: start: 2020, end: 2020
  2. DUODOPA [Suspect]
     Active Substance: CARBIDOPA\LEVODOPA
     Dosage: CD DURING DAY 4.4 ML; CD DURING NIGHT 3 ML; 24 H TREATMENT
     Route: 050
     Dates: start: 2020

REACTIONS (7)
  - Hyperhidrosis [Unknown]
  - Pain [Not Recovered/Not Resolved]
  - Device placement issue [Unknown]
  - Back pain [Unknown]
  - Cholecystitis [Recovering/Resolving]
  - Back disorder [Unknown]
  - Fatigue [Not Recovered/Not Resolved]

NARRATIVE: CASE EVENT DATE: 2020
